FAERS Safety Report 24081095 (Version 1)
Quarter: 2024Q3

REPORT INFORMATION
  Report Type: Spontaneous
  Country: PT (occurrence: PT)
  Receive Date: 20240711
  Receipt Date: 20240711
  Transmission Date: 20241017
  Serious: Yes (Life-Threatening, Hospitalization, Other)
  Sender: PFIZER
  Company Number: PT-PFIZER INC-202400208671

PATIENT
  Age: 73 Year
  Sex: Male

DRUGS (1)
  1. RITUXIMAB [Suspect]
     Active Substance: RITUXIMAB
     Indication: Mantle cell lymphoma
     Dosage: UNK

REACTIONS (9)
  - Immunosuppression [Unknown]
  - COVID-19 pneumonia [Unknown]
  - Pneumonia bacterial [Unknown]
  - Encephalitis herpes [Unknown]
  - Organising pneumonia [Unknown]
  - Bronchopulmonary aspergillosis [Unknown]
  - Pneumonia fungal [Unknown]
  - Pneumonia klebsiella [Unknown]
  - Respiratory syncytial virus infection [Unknown]
